FAERS Safety Report 7446185-4 (Version None)
Quarter: 2011Q2

REPORT INFORMATION
  Report Type: 
  Country: None (occurrence: None)
  Receive Date: 20110429
  Receipt Date: 20110419
  Transmission Date: 20111010
  Serious: Yes (Hospitalization)
  Sender: FDA-Public Use
  Company Number: BR-US-EMD SERONO, INC.-7054973

PATIENT
  Sex: Male

DRUGS (4)
  1. AZATHIOPRIN [Concomitant]
  2. REBIF [Suspect]
     Indication: SECONDARY PROGRESSIVE MULTIPLE SCLEROSIS
     Dates: start: 20050808
  3. ADALAT [Concomitant]
  4. DIAZEPAM [Concomitant]

REACTIONS (3)
  - OFF LABEL USE [None]
  - URINARY INCONTINENCE [None]
  - THROMBOSIS [None]
